FAERS Safety Report 5362370-X (Version None)
Quarter: 2007Q2

REPORT INFORMATION
  Report Type: 
  Country: None (occurrence: None)
  Receive Date: 20070619
  Receipt Date: 20070612
  Transmission Date: 20071010
  Serious: Yes (Other)
  Sender: FDA-Public Use
  Company Number: IE-SOLVAY-00207032738

PATIENT
  Age: 59 Year
  Sex: Male

DRUGS (9)
  1. BUMETANIDE [Concomitant]
     Indication: ILL-DEFINED DISORDER
     Dosage: DAILY DOSE: 2 MILLIGRAM(S)
     Route: 065
  2. PERINDOPRIL [MANUFACTURER UNKNOWN] [Interacting]
     Indication: ILL-DEFINED DISORDER
     Dosage: DAILY DOSE: 4 MILLIGRAM(S)
     Route: 048
  3. PREGABALIN [Suspect]
     Indication: DIABETIC NEUROPATHY
     Dosage: DAILY DOSE:  UNKNOWN
     Route: 065
  4. METOPROLOL SUCCINATE [Concomitant]
     Indication: ILL-DEFINED DISORDER
     Dosage: DAILY DOSE: 25 MILLIGRAM(S)
     Route: 065
  5. DIGOXIN [Concomitant]
     Indication: ILL-DEFINED DISORDER
     Dosage: DAILY DOSE: .125 MILLIGRAM(S)
     Route: 065
  6. WARFARIN SODIUM [Concomitant]
     Indication: ILL-DEFINED DISORDER
     Dosage: DAILY DOSE:  UNKNOWN
     Route: 065
  7. PRAVASTATIN [Concomitant]
     Indication: ILL-DEFINED DISORDER
     Dosage: DAILY DOSE:  UNKNOWN
     Route: 065
  8. INSULIN [Concomitant]
     Indication: ILL-DEFINED DISORDER
     Dosage: DAILY DOSE:  UNKNOWN
     Route: 065
  9. METFORMIN HCL [Concomitant]
     Indication: ILL-DEFINED DISORDER
     Dosage: DAILY DOSE:  UNKNOWN
     Route: 065

REACTIONS (2)
  - CARDIAC FAILURE CHRONIC [None]
  - DRUG INTERACTION [None]
